FAERS Safety Report 7651128-4 (Version None)
Quarter: 2011Q3

REPORT INFORMATION
  Report Type: 
  Country: None (occurrence: None)
  Receive Date: 20110727
  Receipt Date: 20110711
  Transmission Date: 20111222
  Serious: Yes (Hospitalization, Other)
  Sender: FDA-Public Use
  Company Number: 2011MA008591

PATIENT
  Age: 5 Month
  Sex: Female
  Weight: 6 kg

DRUGS (1)
  1. FEVERALL [Suspect]
     Indication: ACCIDENTAL OVERDOSE
     Dosage: 520 MG; X1; IV
     Route: 042

REACTIONS (4)
  - INTERNATIONAL NORMALISED RATIO INCREASED [None]
  - ALANINE AMINOTRANSFERASE INCREASED [None]
  - ACCIDENTAL OVERDOSE [None]
  - LIVER DISORDER [None]
